FAERS Safety Report 11455940 (Version 2)
Quarter: 2015Q3

REPORT INFORMATION
  Report Type: Report from Study
  Country: US (occurrence: US)
  Receive Date: 20150903
  Receipt Date: 20150909
  Transmission Date: 20151125
  Serious: Yes (Hospitalization, Other)
  Sender: FDA-Public Use
  Company Number: US-JNJFOC-20150901893

PATIENT
  Age: 68 Year
  Sex: Male

DRUGS (12)
  1. TOPROL XL [Concomitant]
     Active Substance: METOPROLOL SUCCINATE
  2. SULFAMETHOXAZOLE [Concomitant]
     Active Substance: SULFAMETHOXAZOLE
  3. FLOMAX [Concomitant]
     Active Substance: TAMSULOSIN HYDROCHLORIDE
  4. VITAMIN D3 [Concomitant]
     Active Substance: CHOLECALCIFEROL
  5. IMBRUVICA [Suspect]
     Active Substance: IBRUTINIB
     Indication: CHRONIC LYMPHOCYTIC LEUKAEMIA
     Route: 048
     Dates: start: 20150829
  6. IMBRUVICA [Suspect]
     Active Substance: IBRUTINIB
     Indication: CHRONIC LYMPHOCYTIC LEUKAEMIA
     Route: 048
     Dates: start: 20141111, end: 201508
  7. ACYCLOVIR. [Concomitant]
     Active Substance: ACYCLOVIR
  8. ASPIRIN. [Concomitant]
     Active Substance: ASPIRIN
  9. ZOCOR [Concomitant]
     Active Substance: SIMVASTATIN
  10. LOSARTAN. [Concomitant]
     Active Substance: LOSARTAN
  11. POTASSIUM [Concomitant]
     Active Substance: POTASSIUM
  12. ALLOPURINOL. [Concomitant]
     Active Substance: ALLOPURINOL

REACTIONS (4)
  - Loss of consciousness [Unknown]
  - Arterial occlusive disease [Unknown]
  - Scar [Unknown]
  - Cardiovascular disorder [Unknown]

NARRATIVE: CASE EVENT DATE: 2015
